FAERS Safety Report 4314298-1 (Version None)
Quarter: 2004Q1

REPORT INFORMATION
  Report Type: 
  Country: None (occurrence: None)
  Receive Date: 20040309
  Receipt Date: 20040109
  Transmission Date: 20041129
  Serious: Yes (Life-Threatening, Hospitalization)
  Sender: FDA-Public Use
  Company Number: WAES 0401USA00692

PATIENT
  Age: 54 Year
  Sex: Female
  Weight: 63 kg

DRUGS (12)
  1. ALBUTEROL [Concomitant]
  2. ASTELIN [Concomitant]
     Route: 055
  3. PREMARIN [Concomitant]
  4. ZETIA [Concomitant]
     Route: 048
  5. ADVAIR DISKUS 100/50 [Concomitant]
  6. NEURONTIN [Concomitant]
  7. MAXZIDE [Concomitant]
  8. ADVIL [Concomitant]
  9. SINGULAIR [Suspect]
     Indication: ASTHMA
     Route: 048
  10. PATANOL [Concomitant]
  11. POTASSIUM CHLORIDE [Concomitant]
  12. AMBIEN [Concomitant]

REACTIONS (2)
  - CONVULSION [None]
  - HEPATITIS FULMINANT [None]
